FAERS Safety Report 7230826-0 (Version None)
Quarter: 2011Q1

REPORT INFORMATION
  Report Type: 
  Country: None (occurrence: None)
  Receive Date: 20110107
  Receipt Date: 20101222
  Transmission Date: 20110831
  Serious: Yes (Hospitalization)
  Sender: FDA-Public Use
  Company Number: 021509

PATIENT
  Sex: Female
  Weight: 47.1 kg

DRUGS (15)
  1. BLONANSERIN (LONASEN) [Suspect]
     Indication: IDEAS OF REFERENCE
     Dosage: (4 MG ORAL), (8 MG ORAL), (12 MG ORAL), (18 MG ORAL)
     Route: 048
     Dates: start: 20100714, end: 20100726
  2. BLONANSERIN (LONASEN) [Suspect]
     Indication: IDEAS OF REFERENCE
     Dosage: (4 MG ORAL), (8 MG ORAL), (12 MG ORAL), (18 MG ORAL)
     Route: 048
     Dates: start: 20100727, end: 20100816
  3. BLONANSERIN (LONASEN) [Suspect]
     Indication: IDEAS OF REFERENCE
     Dosage: (4 MG ORAL), (8 MG ORAL), (12 MG ORAL), (18 MG ORAL)
     Route: 048
     Dates: start: 20100817, end: 20100906
  4. BLONANSERIN (LONASEN) [Suspect]
     Indication: IDEAS OF REFERENCE
     Dosage: (4 MG ORAL), (8 MG ORAL), (12 MG ORAL), (18 MG ORAL)
     Route: 048
     Dates: start: 20100907
  5. TELESMIN [Concomitant]
  6. CARBAMAZEPINE [Concomitant]
  7. KEPPRA [Suspect]
     Indication: EPILEPSY
     Dosage: (500 MG BID ORAL), (1000 MG BID ORAL), (1500 MG BID ORAL)
     Route: 048
     Dates: start: 20100119, end: 20100215
  8. KEPPRA [Suspect]
     Indication: EPILEPSY
     Dosage: (500 MG BID ORAL), (1000 MG BID ORAL), (1500 MG BID ORAL)
     Route: 048
     Dates: start: 20061130, end: 20100118
  9. KEPPRA [Suspect]
     Indication: EPILEPSY
     Dosage: (500 MG BID ORAL), (1000 MG BID ORAL), (1500 MG BID ORAL)
     Route: 048
     Dates: start: 20060127
  10. KEPPRA [Suspect]
     Indication: EPILEPSY
     Dosage: (500 MG BID ORAL), (1000 MG BID ORAL), (1500 MG BID ORAL)
     Route: 048
     Dates: start: 20060907, end: 20061004
  11. KEPPRA [Suspect]
     Indication: EPILEPSY
     Dosage: (500 MG BID ORAL), (1000 MG BID ORAL), (1500 MG BID ORAL)
     Route: 048
     Dates: start: 20100216, end: 20100722
  12. KEPPRA [Suspect]
     Indication: EPILEPSY
     Dosage: (500 MG BID ORAL), (1000 MG BID ORAL), (1500 MG BID ORAL)
     Route: 048
     Dates: start: 20061005, end: 20061129
  13. KEPPRA [Suspect]
     Indication: EPILEPSY
     Dosage: (500 MG BID ORAL), (1000 MG BID ORAL), (1500 MG BID ORAL)
     Route: 048
     Dates: start: 20100723
  14. LAMICTAL [Concomitant]
  15. ABILIFY [Concomitant]

REACTIONS (4)
  - LACTATION DISORDER [None]
  - MENSTRUATION IRREGULAR [None]
  - ERYTHEMA [None]
  - ACNE [None]
